FAERS Safety Report 15423118 (Version 1)
Quarter: 2018Q3

REPORT INFORMATION
  Report Type: Spontaneous
  Country: US (occurrence: US)
  Receive Date: 20180925
  Receipt Date: 20180925
  Transmission Date: 20181010
  Serious: No
  Sender: FDA-Public Use
  Company Number: US-SUN PHARMACEUTICAL INDUSTRIES LTD-2017US-157483

PATIENT
  Sex: Female
  Weight: 73.48 kg

DRUGS (1)
  1. BACTRIM [Suspect]
     Active Substance: SULFAMETHOXAZOLE\TRIMETHOPRIM
     Indication: PRODUCT USED FOR UNKNOWN INDICATION
     Dosage: 1 DF, SINGLE
     Route: 065

REACTIONS (3)
  - Vulvovaginal burning sensation [Unknown]
  - Eye pruritus [Unknown]
  - Eye swelling [Unknown]
